FAERS Safety Report 11335989 (Version 1)
Quarter: 2015Q3

REPORT INFORMATION
  Report Type: Spontaneous
  Country: FR (occurrence: FR)
  Receive Date: 20150804
  Receipt Date: 20150804
  Transmission Date: 20151125
  Serious: Yes (Other)
  Sender: FDA-Public Use
  Company Number: FR-ASTRAZENECA-2015SE74173

PATIENT
  Age: 80 Year
  Sex: Male
  Weight: 82 kg

DRUGS (5)
  1. MODURETIC 5-50 [Concomitant]
     Active Substance: AMILORIDE HYDROCHLORIDE\HYDROCHLOROTHIAZIDE
     Indication: HYPERTENSION
  2. LOPRESSOR [Concomitant]
     Active Substance: METOPROLOL TARTRATE
     Indication: HYPERTENSION
  3. KARDEGIC [Concomitant]
     Active Substance: ASPIRIN LYSINE
  4. VERCYTE [Concomitant]
     Active Substance: PIPOBROMAN
     Indication: POLYCYTHAEMIA VERA
  5. INEXIUM [Suspect]
     Active Substance: ESOMEPRAZOLE
     Indication: GASTRIC ULCER
     Route: 048

REACTIONS (5)
  - Fatigue [Not Recovered/Not Resolved]
  - Cellulitis [Recovered/Resolved]
  - Thrombophlebitis [Recovering/Resolving]
  - Dysphagia [Not Recovered/Not Resolved]
  - Weight decreased [Not Recovered/Not Resolved]

NARRATIVE: CASE EVENT DATE: 2015
